FAERS Safety Report 8912620 (Version 2)
Quarter: 2013Q1

REPORT INFORMATION
  Report Type: Spontaneous
  Country: US (occurrence: None)
  Receive Date: 20121113
  Receipt Date: 20121211
  Transmission Date: 20140127
  Serious: Yes (Hospitalization)
  Sender: FDA-Public Use
  Company Number: 2012-4272

PATIENT
  Age: 55 Year
  Sex: Female
  Weight: 56.8 kg

DRUGS (4)
  1. SOMATULINE DEPOT [Suspect]
     Indication: CARCINOID SYNDROME
     Dosage: 120 MG (120 MG, 1 IN 2 WK), UNKNOWN
     Dates: start: 20120711, end: 20120823
  2. VITAMINS [Concomitant]
  3. CREON (PANCREATIN) [Concomitant]
  4. GABAPENTIN (GABAPENTIN) [Concomitant]

REACTIONS (7)
  - Intestinal obstruction [None]
  - Somnolence [None]
  - Post procedural complication [None]
  - Blood bilirubin increased [None]
  - Blood chromogranin A increased [None]
  - Self-medication [None]
  - Inadequate analgesia [None]
